FAERS Safety Report 6615629-X (Version None)
Quarter: 2010Q1

REPORT INFORMATION
  Report Type: 
  Country: None (occurrence: None)
  Receive Date: 20100305
  Receipt Date: 20100302
  Transmission Date: 20100710
  Serious: Yes (Other)
  Sender: FDA-Public Use
  Company Number: US-BAYER-201015375NA

PATIENT
  Age: 36 Year
  Sex: Female

DRUGS (1)
  1. BETASERON [Suspect]
     Indication: DRUG USE FOR UNKNOWN INDICATION
     Route: 058
     Dates: start: 19970101

REACTIONS (3)
  - BLINDNESS UNILATERAL [None]
  - IMMUNE SYSTEM DISORDER [None]
  - OPTIC NEURITIS [None]
